FAERS Safety Report 12492540 (Version 2)
Quarter: 2016Q2

REPORT INFORMATION
  Report Type: Spontaneous
  Country: FR (occurrence: FR)
  Receive Date: 20160623
  Receipt Date: 20160628
  Transmission Date: 20160815
  Serious: Yes (Hospitalization, Other)
  Sender: FDA-Public Use
  Company Number: FR-GLAXOSMITHKLINE-FR2016GSK086979

PATIENT
  Age: 38 Year
  Sex: Female

DRUGS (8)
  1. METHOTREXATE [Concomitant]
     Active Substance: METHOTREXATE
     Indication: ECTOPIC PREGNANCY
     Dosage: 70 MG, Z
     Route: 030
     Dates: start: 20150517, end: 20150524
  2. CEFOXITIN [Suspect]
     Active Substance: CEFOXITIN SODIUM
     Indication: PRODUCT USED FOR UNKNOWN INDICATION
     Dosage: 2 G, SINGLE
     Route: 042
     Dates: start: 20150617
  3. SEVOFLURANE. [Suspect]
     Active Substance: SEVOFLURANE
     Indication: SALPINGECTOMY
     Dosage: UNK
     Route: 055
     Dates: start: 20150617
  4. ACUPAN [Suspect]
     Active Substance: NEFOPAM HYDROCHLORIDE
     Indication: PROCEDURAL PAIN
     Dosage: 20 MG, SINGLE
     Route: 042
     Dates: start: 20150617
  5. SUFENTANIL [Suspect]
     Active Substance: SUFENTANIL
     Indication: SALPINGECTOMY
     Dosage: 43.5 MG, SINGLE
     Route: 042
     Dates: start: 20150617
  6. NIMBEX [Suspect]
     Active Substance: CISATRACURIUM BESYLATE
     Indication: SALPINGECTOMY
     Dosage: 1 DF, SINGLE
     Route: 042
     Dates: start: 20150617
  7. PROPOFOL. [Suspect]
     Active Substance: PROPOFOL
     Indication: SALPINGECTOMY
     Dosage: 150 MG, SINGLE
     Route: 042
     Dates: start: 20150617
  8. BIPROFENID [Suspect]
     Active Substance: KETOPROFEN
     Indication: PROCEDURAL PAIN
     Dosage: 1 DF, SINGLE
     Route: 048
     Dates: start: 20150618

REACTIONS (1)
  - Hepatocellular injury [Recovered/Resolved]

NARRATIVE: CASE EVENT DATE: 20150619
